FAERS Safety Report 4605948-0 (Version None)
Quarter: 2005Q1

REPORT INFORMATION
  Report Type: 
  Country: None (occurrence: None)
  Receive Date: 20050311
  Receipt Date: 20050228
  Transmission Date: 20050727
  Serious: Yes (Death)
  Sender: FDA-Public Use
  Company Number: US-GLAXOSMITHKLINE-A0547639A

PATIENT
  Age: 44 Year
  Sex: Female

DRUGS (5)
  1. TOPOTECAN [Suspect]
     Indication: NON-SMALL CELL LUNG CANCER STAGE IV
     Dosage: 3.5MGM2 CYCLIC
     Route: 042
     Dates: start: 20050221
  2. TAXOTERE [Suspect]
     Indication: NON-SMALL CELL LUNG CANCER STAGE IV
     Dosage: 30MGM2 CYCLIC
     Route: 042
     Dates: start: 20050221
  3. ADVAIR DISKUS 100/50 [Concomitant]
     Dosage: 1PUFF TWICE PER DAY
     Route: 055
     Dates: start: 20040803
  4. DEMADEX [Concomitant]
     Dosage: 20MG PER DAY
     Route: 048
     Dates: start: 20050220
  5. DECADRON [Concomitant]
     Indication: PREMEDICATION
     Dosage: 4MG VARIABLE DOSE
     Route: 048
     Dates: start: 20050220, end: 20050221

REACTIONS (6)
  - DEEP VEIN THROMBOSIS [None]
  - HAEMOPTYSIS [None]
  - OEDEMA PERIPHERAL [None]
  - PULMONARY HAEMORRHAGE [None]
  - RESPIRATORY ARREST [None]
  - THROMBOCYTOPENIA [None]
